FAERS Safety Report 7107095-5 (Version None)
Quarter: 2010Q4

REPORT INFORMATION
  Report Type: 
  Country: None (occurrence: None)
  Receive Date: 20101116
  Receipt Date: 20101108
  Transmission Date: 20110411
  Serious: Yes (Other)
  Sender: FDA-Public Use
  Company Number: FR-ABBOTT-10P-056-0681308-00

PATIENT
  Sex: Female

DRUGS (2)
  1. HUMIRA [Suspect]
     Indication: PSORIASIS
     Dates: start: 20090101
  2. HUMIRA [Suspect]
     Dates: start: 20100901, end: 20101022

REACTIONS (5)
  - CEREBRAL VENOUS THROMBOSIS [None]
  - DIPLOPIA [None]
  - NAUSEA [None]
  - PAPILLOEDEMA [None]
  - PSORIASIS [None]
